FAERS Safety Report 9732747 (Version 1)
Quarter: 2013Q4

REPORT INFORMATION
  Report Type: Report from Study
  Country: GB (occurrence: GB)
  Receive Date: 20131204
  Receipt Date: 20131204
  Transmission Date: 20140711
  Serious: Yes (Disabling)
  Sender: FDA-Public Use
  Company Number: GB-GLAXOSMITHKLINE-B0829325A

PATIENT
  Age: 71 Year
  Sex: Female

DRUGS (3)
  1. FLUTICASONE FUROATE + VILANTEROL TRIFENATATE [Suspect]
     Indication: CHRONIC OBSTRUCTIVE PULMONARY DISEASE
     Route: 055
     Dates: start: 20120730, end: 20120906
  2. BUDESONIDE + FORMOTEROL FUMARATE DIHYDRATE [Suspect]
     Indication: CHRONIC OBSTRUCTIVE PULMONARY DISEASE
     Route: 055
     Dates: start: 20120907
  3. BETNOVATE OINTMENT [Concomitant]
     Indication: DERMATITIS
     Route: 061
     Dates: start: 20120829, end: 20120930

REACTIONS (1)
  - Dermatitis [Recovered/Resolved]
